FAERS Safety Report 20488693 (Version 1)
Quarter: 2022Q1

REPORT INFORMATION
  Report Type: Other
  Country: None (occurrence: US)
  Receive Date: 20220218
  Receipt Date: 20220218
  Transmission Date: 20220424
  Serious: Yes (Life-Threatening, Hospitalization, Other)
  Sender: FDA-Public Use
  Company Number: US-Nuvo Pharmaceuticals Inc-2125997

PATIENT
  Age: 35 Year
  Sex: Male

DRUGS (1)
  1. OXYCODONE HYDROCHLORIDE [Suspect]
     Active Substance: OXYCODONE HYDROCHLORIDE
     Indication: Product used for unknown indication
     Route: 042

REACTIONS (7)
  - Lung disorder [Unknown]
  - Disseminated intravascular coagulation [Recovering/Resolving]
  - Acute kidney injury [Unknown]
  - Hepatic function abnormal [Unknown]
  - Condition aggravated [Unknown]
  - Drug abuse [Unknown]
  - Cardiac arrest [Recovered/Resolved]
